FAERS Safety Report 6404544-2 (Version None)
Quarter: 2009Q4

REPORT INFORMATION
  Report Type: 
  Country: None (occurrence: None)
  Receive Date: 20091016
  Receipt Date: 20091005
  Transmission Date: 20100525
  Serious: Yes (Hospitalization)
  Sender: FDA-Public Use
  Company Number: PHHY2009JP35151

PATIENT
  Sex: Female
  Weight: 52 kg

DRUGS (8)
  1. DIOVAN [Suspect]
     Indication: HYPERTENSION
     Dosage: 80 MG DAILY
     Route: 048
     Dates: end: 20090701
  2. DIOVAN [Suspect]
     Dosage: 80 MG DAILY
     Route: 048
     Dates: start: 20090806
  3. DIOVAN HCT [Suspect]
     Indication: HYPERTENSION
     Dosage: 80/6.25 MG DAILY
     Route: 048
     Dates: start: 20090716, end: 20090806
  4. LUPRAC [Concomitant]
     Indication: HYPERTENSION
     Dosage: 4MG
     Route: 048
     Dates: start: 20080415
  5. ASPIRIN [Concomitant]
     Indication: CEREBRAL INFARCTION
     Dosage: 100MG
     Route: 048
     Dates: start: 20080415
  6. LIPITOR [Concomitant]
     Indication: HYPERLIPIDAEMIA
     Dosage: 10MG
     Route: 048
     Dates: start: 20080415
  7. MERISLON [Concomitant]
     Indication: DIZZINESS
     Dosage: 6MG
     Route: 048
     Dates: start: 20080415
  8. HALCION [Concomitant]
     Indication: INSOMNIA
     Dosage: 0.25MG
     Route: 048
     Dates: start: 20080415

REACTIONS (13)
  - ATRIAL FIBRILLATION [None]
  - BLOOD PRESSURE DECREASED [None]
  - BLOOD PRESSURE INCREASED [None]
  - CARDIAC FAILURE [None]
  - DIZZINESS [None]
  - DYSPNOEA [None]
  - FACE OEDEMA [None]
  - HEART RATE INCREASED [None]
  - MALAISE [None]
  - OEDEMA PERIPHERAL [None]
  - RALES [None]
  - VENTRICULAR EXTRASYSTOLES [None]
  - WHEEZING [None]
